FAERS Safety Report 6824516-3 (Version None)
Quarter: 2010Q3

REPORT INFORMATION
  Report Type: 
  Country: None (occurrence: None)
  Receive Date: 20100708
  Receipt Date: 20061030
  Transmission Date: 20110219
  Serious: No
  Sender: FDA-Public Use
  Company Number: US-PFIZER INC-2006134914

PATIENT
  Sex: Female
  Weight: 63.5 kg

DRUGS (5)
  1. CHANTIX [Suspect]
     Indication: SMOKING CESSATION THERAPY
     Dates: start: 20061027
  2. PROTONIX [Concomitant]
  3. ATIVAN [Concomitant]
  4. CYMBALTA [Concomitant]
  5. BUSPAR [Concomitant]

REACTIONS (3)
  - NIGHT SWEATS [None]
  - NIGHTMARE [None]
  - PRURITUS [None]
